FAERS Safety Report 9096478 (Version 1)
Quarter: 2013Q1

REPORT INFORMATION
  Report Type: Spontaneous
  Country: US (occurrence: US)
  Receive Date: 20130211
  Receipt Date: 20130211
  Transmission Date: 20140127
  Serious: No
  Sender: FDA-Public Use
  Company Number: US-BAYER-2013-009154

PATIENT
  Age: 70 Year
  Sex: Male

DRUGS (5)
  1. LEVITRA [Suspect]
     Indication: ERECTILE DYSFUNCTION
     Dosage: 5 MG, Q1MON
     Route: 048
     Dates: end: 201210
  2. LEVITRA [Suspect]
     Indication: ERECTILE DYSFUNCTION
     Dosage: 10 MG, Q1MON
     Route: 048
     Dates: start: 201210, end: 201212
  3. LEVITRA [Suspect]
     Indication: ERECTILE DYSFUNCTION
     Dosage: 20 MG, Q1MON
     Route: 048
     Dates: start: 201212
  4. ZOCOR [Concomitant]
     Indication: BLOOD CHOLESTEROL INCREASED
  5. ORACEA [Concomitant]
     Indication: ROSACEA

REACTIONS (3)
  - Drug ineffective [Not Recovered/Not Resolved]
  - Headache [Not Recovered/Not Resolved]
  - Flushing [None]
